FAERS Safety Report 6207829-8 (Version None)
Quarter: 2009Q2

REPORT INFORMATION
  Report Type: 
  Country: None (occurrence: None)
  Receive Date: 20090528
  Receipt Date: 20090520
  Transmission Date: 20091009
  Serious: Yes (Other)
  Sender: FDA-Public Use
  Company Number: DE-JNJCH-2009010634

PATIENT
  Sex: Female

DRUGS (1)
  1. REGAINE MAENNER [Suspect]
     Indication: DRUG USE FOR UNKNOWN INDICATION
     Dosage: TEXT:UNSPECIFIED
     Route: 061
     Dates: start: 20090101, end: 20090414

REACTIONS (10)
  - CONTUSION [None]
  - EPHELIDES [None]
  - EYE PAIN [None]
  - EYE SWELLING [None]
  - PAIN IN EXTREMITY [None]
  - PRURITUS [None]
  - SPIDER VEIN [None]
  - SWELLING FACE [None]
  - VISUAL ACUITY REDUCED [None]
  - WRONG DRUG ADMINISTERED [None]
